FAERS Safety Report 6199794-7 (Version None)
Quarter: 2009Q2

REPORT INFORMATION
  Report Type: 
  Country: None (occurrence: None)
  Receive Date: 20090522
  Receipt Date: 20090515
  Transmission Date: 20091009
  Serious: Yes (Other)
  Sender: FDA-Public Use
  Company Number: US-BAYER-200916907NA

PATIENT
  Age: 81 Year
  Sex: Female

DRUGS (4)
  1. NEXAVAR [Suspect]
     Indication: HEPATIC NEOPLASM MALIGNANT
     Dosage: TOTAL DAILY DOSE: 800 MG  UNIT DOSE: 200 MG
     Route: 048
     Dates: start: 20090323, end: 20090421
  2. NEXAVAR [Suspect]
     Dosage: TOTAL DAILY DOSE: 800 MG  UNIT DOSE: 200 MG
     Route: 048
     Dates: start: 20090501
  3. VICODIN [Concomitant]
     Indication: PAIN
  4. COMPAZINE [Concomitant]
     Indication: NAUSEA
     Dosage: PRIOR TO EVERY DOSE OF NEXAVAR

REACTIONS (5)
  - ANOREXIA [None]
  - FATIGUE [None]
  - NAUSEA [None]
  - RASH [None]
  - SOMNOLENCE [None]
